FAERS Safety Report 13922819 (Version 4)
Quarter: 2018Q4

REPORT INFORMATION
  Report Type: Report from Study
  Country: US (occurrence: US)
  Receive Date: 20170830
  Receipt Date: 20181014
  Transmission Date: 20190204
  Serious: Yes (Other)
  Sender: FDA-Public Use
  Company Number: PHEH2017US027766

PATIENT
  Age: 28 Year
  Sex: Female

DRUGS (2)
  1. GILENYA [Suspect]
     Active Substance: FINGOLIMOD HYDROCHLORIDE
     Indication: RELAPSING-REMITTING MULTIPLE SCLEROSIS
     Dosage: 0.5 MG, QD
     Route: 065
     Dates: start: 20170517
  2. GILENYA [Suspect]
     Active Substance: FINGOLIMOD HYDROCHLORIDE
     Indication: MULTIPLE SCLEROSIS

REACTIONS (11)
  - Memory impairment [Unknown]
  - Scratch [Unknown]
  - Migraine [Unknown]
  - Impaired healing [Unknown]
  - Feeling abnormal [Unknown]
  - Headache [Unknown]
  - Wound [Unknown]
  - Product packaging issue [Unknown]
  - Multiple sclerosis relapse [Unknown]
  - Concomitant disease aggravated [Unknown]
  - Exposure to toxic agent [Unknown]

NARRATIVE: CASE EVENT DATE: 201708
